FAERS Safety Report 8250743-7 (Version None)
Quarter: 2012Q2

REPORT INFORMATION
  Report Type: 
  Country: None (occurrence: None)
  Receive Date: 20120402
  Receipt Date: 20120320
  Transmission Date: 20120825
  Serious: Yes (Hospitalization)
  Sender: FDA-Public Use
  Company Number: US-ELI_LILLY_AND_COMPANY-US201201004858

PATIENT
  Sex: Male
  Weight: 116 kg

DRUGS (3)
  1. COGENTIN [Concomitant]
     Dosage: 20 MG, EACH EVENING
  2. COGENTIN [Concomitant]
     Dosage: 10 MG, EACH MORNING
  3. ZYPREXA RELPREVV [Suspect]
     Dosage: 405 MG, Q 3 WEEKS
     Route: 030
     Dates: start: 20100902

REACTIONS (3)
  - DRUG DOSE OMISSION [None]
  - SCHIZOAFFECTIVE DISORDER [None]
  - OVERDOSE [None]
